FAERS Safety Report 9815530 (Version 2)
Quarter: 2014Q1

REPORT INFORMATION
  Report Type: Report from Study
  Country: US (occurrence: US)
  Receive Date: 20140114
  Receipt Date: 20140320
  Transmission Date: 20141002
  Serious: Yes (Life-Threatening, Hospitalization)
  Sender: FDA-Public Use
  Company Number: US-JNJFOC-20140104128

PATIENT
  Age: 30 Year
  Sex: Male

DRUGS (4)
  1. NUCYNTA ER [Suspect]
     Indication: PRODUCT USED FOR UNKNOWN INDICATION
     Route: 048
  2. TRAMADOL [Suspect]
     Indication: PRODUCT USED FOR UNKNOWN INDICATION
     Route: 048
  3. BACLOFEN [Suspect]
     Indication: PRODUCT USED FOR UNKNOWN INDICATION
     Route: 048
  4. ETHANOL [Suspect]
     Indication: PRODUCT USED FOR UNKNOWN INDICATION
     Route: 048

REACTIONS (13)
  - Intentional overdose [Unknown]
  - Respiratory depression [Not Recovered/Not Resolved]
  - Tachycardia [Unknown]
  - Electroencephalogram abnormal [Unknown]
  - Bradycardia [Unknown]
  - Hypotension [Recovered/Resolved]
  - Restlessness [Unknown]
  - Hypertension [Recovered/Resolved]
  - Acidosis [Unknown]
  - Blood potassium decreased [Unknown]
  - Blood glucose decreased [Unknown]
  - Agitation [Recovering/Resolving]
  - Somnolence [Unknown]
